FAERS Safety Report 8070083-9 (Version None)
Quarter: 2012Q1

REPORT INFORMATION
  Report Type: 
  Country: None (occurrence: None)
  Receive Date: 20120125
  Receipt Date: 20120117
  Transmission Date: 20120608
  Serious: Yes (Hospitalization)
  Sender: FDA-Public Use
  Company Number: US-AMGEN-USACT2011056380

PATIENT
  Age: 62 Year
  Sex: Male

DRUGS (17)
  1. PROTONIX [Concomitant]
     Dosage: 40 MG, UNK
  2. LOVENOX [Concomitant]
     Dosage: UNK
  3. VANCOMYCIN [Concomitant]
  4. IRINOTECAN HCL [Concomitant]
     Indication: COLORECTAL CANCER METASTATIC
     Dosage: 310 MG, Q3WK
     Route: 042
     Dates: start: 20110913, end: 20111025
  5. ROCEPHIN [Concomitant]
  6. FRAGMIN [Concomitant]
  7. BEVACIZUMAB [Concomitant]
     Dosage: 330 MG, Q3WK
     Route: 042
     Dates: start: 20110913, end: 20111025
  8. MS CONTIN [Concomitant]
     Dosage: 30 MG, BID
  9. ATIVAN [Concomitant]
     Dosage: 1 MG, TID
  10. LISINOPRIL [Concomitant]
     Dosage: 10 MG, QD
  11. NEULASTA [Suspect]
     Indication: COLORECTAL CANCER METASTATIC
     Dosage: 6 MG, UNK
     Route: 058
     Dates: start: 20110916, end: 20111025
  12. LEUCOVORIN CALCIUM [Concomitant]
     Indication: COLORECTAL CANCER METASTATIC
     Dosage: 688 MG, Q3WK
     Route: 042
     Dates: start: 20110913, end: 20111025
  13. COLACE [Concomitant]
  14. FLUOROURACIL [Concomitant]
     Indication: COLORECTAL CANCER METASTATIC
     Dosage: 688 MG, Q3WK
     Route: 042
     Dates: start: 20110913, end: 20111025
  15. DURAGESIC-100 [Concomitant]
     Dosage: UNK
  16. OXYCODONE HCL [Concomitant]
     Dosage: 6
  17. ONDANSETRON HCL [Concomitant]

REACTIONS (1)
  - MENTAL STATUS CHANGES [None]
